FAERS Safety Report 4895593-4 (Version None)
Quarter: 2006Q1

REPORT INFORMATION
  Report Type: 
  Country: None (occurrence: None)
  Receive Date: 20060125
  Receipt Date: 20060123
  Transmission Date: 20060701
  Serious: Yes (Other)
  Sender: FDA-Public Use
  Company Number: FPI-06-005

PATIENT
  Sex: Male
  Weight: 101.6057 kg

DRUGS (4)
  1. TEV-TROPIN [Suspect]
     Indication: OSTEOPOROSIS
     Dosage: 2.4 MG-QD-SQ
     Route: 058
     Dates: start: 20050930, end: 20060120
  2. LIPITOR [Concomitant]
  3. LEVITRA [Concomitant]
  4. DEPO-TESTOSTERONE [Concomitant]

REACTIONS (2)
  - ECONOMIC PROBLEM [None]
  - PROSTATE CANCER [None]
